FAERS Safety Report 5281436-6 (Version None)
Quarter: 2007Q1

REPORT INFORMATION
  Report Type: 
  Country: None (occurrence: None)
  Receive Date: 20070330
  Receipt Date: 20070322
  Transmission Date: 20070707
  Serious: Yes (Hospitalization)
  Sender: FDA-Public Use
  Company Number: DE-BAYER-200710261BVD

PATIENT
  Sex: Male

DRUGS (2)
  1. MOXIFLOXACIN HCL [Suspect]
     Indication: SINUSITIS
     Route: 065
  2. BETAMETHASON [Concomitant]
     Indication: SINUSITIS
     Route: 065

REACTIONS (4)
  - EPISTAXIS [None]
  - HAEMATOCHEZIA [None]
  - IDIOPATHIC THROMBOCYTOPENIC PURPURA [None]
  - THROMBOCYTOPENIA [None]
